FAERS Safety Report 13074688 (Version 1)
Quarter: 2016Q4

REPORT INFORMATION
  Report Type: Spontaneous
  Country: US (occurrence: US)
  Receive Date: 20161230
  Receipt Date: 20161230
  Transmission Date: 20170207
  Serious: No
  Sender: FDA-Public Use
  Company Number: US-PAR PHARMACEUTICAL, INC-2016SCPR015897

PATIENT
  Sex: Male

DRUGS (2)
  1. ADRENALIN [Suspect]
     Active Substance: EPINEPHRINE
     Dosage: UNK UNK, SINGLE
     Route: 042
     Dates: start: 20160927, end: 20160927
  2. ADRENALIN [Suspect]
     Active Substance: EPINEPHRINE
     Indication: PRODUCT USED FOR UNKNOWN INDICATION
     Dosage: UNK UNK, UNKNOWN
     Route: 042

REACTIONS (1)
  - Incorrect route of drug administration [Unknown]
